FAERS Safety Report 9032612 (Version 2)
Quarter: 2013Q1

REPORT INFORMATION
  Report Type: Spontaneous
  Country: JP (occurrence: JP)
  Receive Date: 20130122
  Receipt Date: 20130130
  Transmission Date: 20140127
  Serious: Yes (Death)
  Sender: FDA-Public Use
  Company Number: PHHY2013JP005386

PATIENT
  Age: 80 Year
  Sex: Male

DRUGS (6)
  1. EXELON PATCH [Suspect]
     Indication: DEMENTIA ALZHEIMER^S TYPE
     Dosage: 4.5 MG, DAILY
     Route: 062
     Dates: start: 20121031, end: 20121125
  2. EXELON PATCH [Suspect]
     Dosage: 9 MG, DAILY
     Route: 062
     Dates: start: 20121126, end: 20121225
  3. EXELON PATCH [Suspect]
     Dosage: 13.5 MG, DAILY
     Route: 062
     Dates: start: 20121226
  4. SEDIEL [Concomitant]
     Indication: ANXIETY
     Dosage: 10 MG, DAILY
     Route: 048
     Dates: start: 20121031
  5. CARCOPA [Concomitant]
     Indication: PARKINSON^S DISEASE
     Dosage: 100 MG, DAILY
     Route: 048
     Dates: start: 20121112, end: 20121125
  6. CARCOPA [Concomitant]
     Dosage: 150 MG, DAILY
     Route: 048
     Dates: start: 20121126

REACTIONS (1)
  - Sudden death [Fatal]
